FAERS Safety Report 13038752 (Version 1)
Quarter: 2016Q4

REPORT INFORMATION
  Report Type: Spontaneous
  Country: FR (occurrence: FR)
  Receive Date: 20161219
  Receipt Date: 20161219
  Transmission Date: 20170207
  Serious: Yes (Hospitalization)
  Sender: FDA-Public Use
  Company Number: PHHY2016FR171822

PATIENT
  Age: 26 Year
  Sex: Female

DRUGS (8)
  1. TRAMADOL. [Suspect]
     Active Substance: TRAMADOL
     Indication: ABDOMINAL PAIN
     Route: 042
  2. PARACETAMOL [Suspect]
     Active Substance: ACETAMINOPHEN
     Indication: ABDOMINAL PAIN
     Route: 042
  3. PHLOROGLUCINOL [Suspect]
     Active Substance: PHLOROGLUCINOL
     Indication: BACK PAIN
  4. NEFOPAM [Suspect]
     Active Substance: NEFOPAM
     Indication: BACK PAIN
  5. PHLOROGLUCINOL [Suspect]
     Active Substance: PHLOROGLUCINOL
     Indication: ABDOMINAL PAIN
     Route: 042
  6. TRAMADOL. [Suspect]
     Active Substance: TRAMADOL
     Indication: BACK PAIN
  7. NEFOPAM [Suspect]
     Active Substance: NEFOPAM
     Indication: ABDOMINAL PAIN
     Route: 042
  8. PARACETAMOL [Suspect]
     Active Substance: ACETAMINOPHEN
     Indication: BACK PAIN

REACTIONS (3)
  - Renal failure [Recovered/Resolved]
  - Porphyria acute [Recovered/Resolved]
  - Posterior reversible encephalopathy syndrome [Recovered/Resolved]
